FAERS Safety Report 19914058 (Version 1)
Quarter: 2021Q4

REPORT INFORMATION
  Report Type: Other
  Country: GB (occurrence: GB)
  Receive Date: 20211005
  Receipt Date: 20211005
  Transmission Date: 20220304
  Serious: Yes (Other)
  Sender: FDA-Public Use
  Company Number: GB-NATCO PHARMA LIMITED-2119174

PATIENT

DRUGS (2)
  1. LANSOPRAZOLE [Suspect]
     Active Substance: LANSOPRAZOLE
     Indication: Product used for unknown indication
  2. DOMPERIDONE [Suspect]
     Active Substance: DOMPERIDONE

REACTIONS (2)
  - Kounis syndrome [None]
  - Electrocardiogram QT prolonged [None]
